FAERS Safety Report 13687360 (Version 2)
Quarter: 2017Q3

REPORT INFORMATION
  Report Type: Other
  Country: GB (occurrence: US)
  Receive Date: 20170623
  Receipt Date: 20170901
  Transmission Date: 20171127
  Serious: Yes (Life-Threatening, Hospitalization, Other)
  Sender: FDA-Public Use
  Company Number: US-INTERNATIONAL MEDICATION SYSTEMS, LIMITED-2022475

PATIENT
  Age: 74 Year
  Sex: Female

DRUGS (12)
  1. SIMVASTATIN. [Concomitant]
     Active Substance: SIMVASTATIN
  2. GLUCOSE INFUSION [Suspect]
     Active Substance: DEXTROSE
     Route: 040
  3. SPIRONOLACTONE. [Suspect]
     Active Substance: SPIRONOLACTONE
  4. BUMETANIDE. [Concomitant]
     Active Substance: BUMETANIDE
  5. METOLAZONE. [Concomitant]
     Active Substance: METOLAZONE
  6. CARVEDILOL. [Concomitant]
     Active Substance: CARVEDILOL
  7. POTASSIUM CHLORIDE. [Concomitant]
     Active Substance: POTASSIUM CHLORIDE
  8. GLUCOSE INFUSION [Suspect]
     Active Substance: DEXTROSE
     Indication: HYPOGLYCAEMIA
     Route: 040
  9. ACETYLSALICYLIC ACID [Concomitant]
     Active Substance: ASPIRIN
  10. PAROXETINE. [Concomitant]
     Active Substance: PAROXETINE
  11. ISOPHANE INSULIN [Concomitant]
     Active Substance: INSULIN NOS
  12. ISOPHANE INSULIN [Concomitant]
     Active Substance: INSULIN NOS

REACTIONS (2)
  - Hyperkalaemia [Unknown]
  - Cardiac arrest [Unknown]
